FAERS Safety Report 7509193-0 (Version None)
Quarter: 2011Q2

REPORT INFORMATION
  Report Type: 
  Country: None (occurrence: None)
  Receive Date: 20110527
  Receipt Date: 20110517
  Transmission Date: 20111010
  Serious: Yes (Other)
  Sender: FDA-Public Use
  Company Number: US-AMGEN-USASP2011025491

PATIENT
  Age: 56 Year
  Sex: Female

DRUGS (2)
  1. METHOTREXATE [Concomitant]
     Dosage: 8 MG, QWK
     Dates: start: 20090101
  2. ENBREL [Suspect]
     Indication: RHEUMATOID ARTHRITIS
     Dosage: 25 MG, 2 TIMES/WK
     Dates: start: 20020101

REACTIONS (7)
  - PNEUMONIA BACTERIAL [None]
  - EXFOLIATIVE RASH [None]
  - RASH VESICULAR [None]
  - DYSPNOEA [None]
  - RHEUMATOID ARTHRITIS [None]
  - LUNG NEOPLASM [None]
  - ASTHENIA [None]
